FAERS Safety Report 11600617 (Version 1)
Quarter: 2015Q4

REPORT INFORMATION
  Report Type: Spontaneous
  Country: US (occurrence: US)
  Receive Date: 20151006
  Receipt Date: 20151006
  Transmission Date: 20160304
  Serious: No
  Sender: FDA-Public Use
  Company Number: US-AMGEN-USASP2014096451

PATIENT
  Age: 65 Year
  Sex: Female
  Weight: 80.27 kg

DRUGS (32)
  1. VESICARE [Concomitant]
     Active Substance: SOLIFENACIN SUCCINATE
     Dosage: 5 MG, QD
     Route: 048
     Dates: start: 20140624
  2. FLUTICASONE [Concomitant]
     Active Substance: FLUTICASONE\FLUTICASONE PROPIONATE
     Dosage: 50 MUG, (2 SPRAYS PER NOSTRIL)
     Route: 045
     Dates: start: 20140925
  3. OMEPRAZOLE. [Concomitant]
     Active Substance: OMEPRAZOLE
     Indication: GASTROOESOPHAGEAL REFLUX DISEASE
     Dosage: 40 MG, QD
     Route: 048
     Dates: start: 20131016, end: 20140114
  4. LIDODERM [Concomitant]
     Active Substance: LIDOCAINE
     Dosage: 1 UNK, TID
     Dates: start: 20121005
  5. PENNSAID [Concomitant]
     Active Substance: DICLOFENAC SODIUM
     Dosage: 1.5 %, UNK
  6. OMNARIS [Concomitant]
     Active Substance: CICLESONIDE
     Indication: HYPERSENSITIVITY
     Dosage: 50 MUG, QD (1-2 SPRAY)
     Route: 045
     Dates: start: 20111207
  7. IBUPROFEN. [Concomitant]
     Active Substance: IBUPROFEN
     Dosage: 800 MG, TID
     Route: 048
     Dates: start: 20141030
  8. ADIPEX-P [Concomitant]
     Active Substance: PHENTERMINE HYDROCHLORIDE
     Dosage: 37.5 MG, (1/2 TAB)QD
     Route: 048
     Dates: start: 20140501, end: 20140925
  9. CARDIZEM CD [Concomitant]
     Active Substance: DILTIAZEM HYDROCHLORIDE
     Dosage: 120 MG, QD
     Route: 048
     Dates: start: 20130314, end: 20131011
  10. PROLIA [Suspect]
     Active Substance: DENOSUMAB
     Indication: OSTEOPOROSIS
     Dosage: 60 MG/ML, Q6MO
     Route: 058
     Dates: start: 20130521, end: 20141218
  11. ADVIL (MEFENAMIC ACID) [Concomitant]
     Active Substance: MEFENAMIC ACID
     Indication: ARTHRALGIA
     Dosage: 200 MG, 3 CAP EVERY EIGHT HOURS
     Route: 048
     Dates: start: 20131011
  12. NORCO [Concomitant]
     Active Substance: ACETAMINOPHEN\HYDROCODONE BITARTRATE
     Dosage: 5-325 MG, TID
     Route: 048
     Dates: start: 20141106
  13. VIACTIV                            /00751501/ [Concomitant]
     Dosage: 500-100-40 (1 TAB) BID
     Route: 048
     Dates: start: 20090123
  14. ACIDOPHILUS [Concomitant]
     Active Substance: LACTOBACILLUS ACIDOPHILUS
     Dosage: 1 UNK, QD
     Dates: start: 20141030
  15. AMLODIPINE BESYLATE. [Concomitant]
     Active Substance: AMLODIPINE BESYLATE
     Indication: HYPERTENSION
     Dosage: 10 MG, QD
     Route: 048
     Dates: start: 20010201
  16. AUGMENTIN [Concomitant]
     Active Substance: AMOXICILLIN\CLAVULANATE POTASSIUM
     Dosage: 1TAB (875-1250MG), BID
     Route: 048
     Dates: start: 20131227
  17. ASPIRIN (E.C.) [Concomitant]
     Active Substance: ASPIRIN
     Dosage: 81 MG, QD
     Route: 048
     Dates: start: 20120312
  18. OMNARIS [Concomitant]
     Active Substance: CICLESONIDE
     Indication: SINUS CONGESTION
  19. BACLOFEN. [Concomitant]
     Active Substance: BACLOFEN
     Dosage: 10 MG, QHS
     Route: 048
     Dates: start: 20141106
  20. METOPROLOL TARTRATE. [Concomitant]
     Active Substance: METOPROLOL TARTRATE
     Dosage: 25 MG, BID
     Route: 048
     Dates: start: 20130507, end: 20130805
  21. DIPROLENE [Concomitant]
     Active Substance: BETAMETHASONE DIPROPIONATE
     Indication: RASH
     Dosage: 45 G, UNK
     Dates: start: 20120424
  22. CLARINEX                           /01202601/ [Concomitant]
     Dosage: 5 MG, UNK
  23. ORAMAGIC [Concomitant]
     Dosage: 10 %, QAC , HS
     Dates: start: 20110316
  24. CLOBETASOL PROPIONATE. [Concomitant]
     Active Substance: CLOBETASOL PROPIONATE
     Dosage: 1 UNK, QHS
     Dates: start: 20141106
  25. XANAX [Concomitant]
     Active Substance: ALPRAZOLAM
     Dosage: 0.25 MG, TID
     Route: 048
     Dates: start: 20141030, end: 20141129
  26. MELOXICAM. [Concomitant]
     Active Substance: MELOXICAM
     Indication: PAIN
     Dosage: 15 MG, QD
     Route: 048
     Dates: start: 20110712, end: 20131011
  27. ALVESCO [Concomitant]
     Active Substance: CICLESONIDE
     Indication: LUNG DISORDER
     Dosage: 80 MUG, TID
     Dates: start: 20130925
  28. DIPROLENE [Concomitant]
     Active Substance: BETAMETHASONE DIPROPIONATE
     Indication: PRURITUS
  29. ACETAMINOPHEN. [Concomitant]
     Active Substance: ACETAMINOPHEN
     Dosage: 325 MG, TID
     Route: 048
  30. TESSALON [Concomitant]
     Active Substance: BENZONATATE
     Dosage: 200 MG, TID
     Route: 048
  31. CLARITIN [Concomitant]
     Active Substance: LORATADINE
     Indication: RHINITIS ALLERGIC
     Dosage: 10 MG, UNK
     Route: 048
     Dates: start: 20141030
  32. PRILOSEC [Concomitant]
     Active Substance: OMEPRAZOLE MAGNESIUM
     Dosage: 40 MG, QD
     Route: 048
     Dates: start: 20141030

REACTIONS (2)
  - Pain [Unknown]
  - Rash [Unknown]
